FAERS Safety Report 4996199-9 (Version None)
Quarter: 2006Q2

REPORT INFORMATION
  Report Type: 
  Country: None (occurrence: None)
  Receive Date: 20060504
  Receipt Date: 20060427
  Transmission Date: 20061013
  Serious: Yes (Hospitalization)
  Sender: FDA-Public Use
  Company Number: B0421952A

PATIENT
  Age: 42 Year
  Sex: Male

DRUGS (2)
  1. IMITREX [Suspect]
     Indication: CLUSTER HEADACHE
     Dosage: 6 MG / AS REQUIRED / SUBCUTANEOUS
     Route: 058
  2. VERAPAMIL [Concomitant]

REACTIONS (9)
  - ACUTE MYOCARDIAL INFARCTION [None]
  - ANGINA PECTORIS [None]
  - CONFUSIONAL STATE [None]
  - CORONARY ARTERY OCCLUSION [None]
  - CORONARY ARTERY STENOSIS [None]
  - DRY MOUTH [None]
  - ELECTROCARDIOGRAM ST SEGMENT ELEVATION [None]
  - HALLUCINATION, VISUAL [None]
  - VERTIGO [None]
